FAERS Safety Report 6783337-0 (Version None)
Quarter: 2010Q2

REPORT INFORMATION
  Report Type: 
  Country: None (occurrence: None)
  Receive Date: 20100622
  Receipt Date: 20100614
  Transmission Date: 20101027
  Serious: Yes (Life-Threatening, Hospitalization)
  Sender: FDA-Public Use
  Company Number: DE-SANOFI-AVENTIS-2010SA025261

PATIENT
  Sex: Male

DRUGS (4)
  1. MULTAQ [Suspect]
     Indication: ATRIAL FIBRILLATION
     Dosage: DAILY DOSE: 800 MG MILLIGRAM(S) EVERY DAY
     Route: 048
     Dates: start: 20100129, end: 20100222
  2. METOPROLOL TARTRATE [Concomitant]
     Indication: TACHYCARDIA
     Dosage: DAILY DOSE: 2 DF DOSAGE FORM EVERY DAY
     Route: 048
  3. ENALAPRIL MALEATE [Concomitant]
     Dosage: DAILY DOSE: 2 DF DOSAGE FORM EVERY DAY
     Route: 048
  4. TORSEMIDE [Concomitant]
     Dosage: DAILY DOSE: 2 DF DOSAGE FORM EVERY DAY
     Route: 048

REACTIONS (7)
  - ARRHYTHMIA [None]
  - ATRIAL FLUTTER [None]
  - CARDIAC FAILURE [None]
  - DYSPNOEA [None]
  - OEDEMA PERIPHERAL [None]
  - PALPITATIONS [None]
  - WEIGHT INCREASED [None]
